FAERS Safety Report 16944971 (Version 1)
Quarter: 2019Q4

REPORT INFORMATION
  Report Type: Report from Study
  Country: US (occurrence: US)
  Receive Date: 20191022
  Receipt Date: 20191022
  Transmission Date: 20200122
  Serious: Yes (Other)
  Sender: FDA-Public Use
  Company Number: US-THERAPEUTICSMD-2019TMD03076

PATIENT
  Age: 67 Year
  Sex: Female
  Weight: 73.02 kg

DRUGS (17)
  1. SERTRALINE [Suspect]
     Active Substance: SERTRALINE HYDROCHLORIDE
     Dosage: 50 MG, 1X/DAY
  2. LINZESS [Concomitant]
     Active Substance: LINACLOTIDE
     Dosage: 72 ?G, 1X/WEEK
  3. ROSUVASTATIN. [Concomitant]
     Active Substance: ROSUVASTATIN
     Dosage: 20 MG, 1X/DAY
     Route: 048
  4. ASPIRI-81 [Concomitant]
     Dosage: 81 MG, 1X/DAY
     Route: 048
  5. MAGNESIUM OXIDE. [Concomitant]
     Active Substance: MAGNESIUM OXIDE
     Dosage: 400 MG, 1X/DAY
     Route: 048
  6. BISOPROLOL-HYDROCHLOROTHIAZIDE [Concomitant]
     Active Substance: BISOPROLOL FUMARATE\HYDROCHLOROTHIAZIDE
     Dosage: 1 TABLETS, 1X/DAY
     Route: 048
  7. METFORMIN [Concomitant]
     Active Substance: METFORMIN HYDROCHLORIDE
     Dosage: UNK
  8. VIT D [Concomitant]
     Active Substance: VITAMIN D NOS
     Dosage: 5000 U, 1X/DAY
  9. METHOCARBAMOL. [Concomitant]
     Active Substance: METHOCARBAMOL
     Dosage: 0.5 TABLETS, 1X/DAY AT BEDTIME
  10. LIPITOR [Concomitant]
     Active Substance: ATORVASTATIN CALCIUM
     Dosage: UNK
  11. UNSPECIFIED BLOOD PRESSURE MEDICATION [Concomitant]
     Active Substance: UNSPECIFIED INGREDIENT
     Dosage: UNK
  12. FISH OIL [Concomitant]
     Active Substance: FISH OIL
     Dosage: 1000 MG, 2X/DAY
     Route: 048
  13. IMVEXXY [Suspect]
     Active Substance: ESTRADIOL
     Indication: MICTURITION DISORDER
     Dosage: 4 ?G, 2X/WEEK AT BEDTIME
     Route: 067
  14. SERTRALINE [Suspect]
     Active Substance: SERTRALINE HYDROCHLORIDE
     Dosage: 75 MG, 1X/DAY
  15. MONTELUKAST [Concomitant]
     Active Substance: MONTELUKAST SODIUM
     Dosage: 10 MG, 1X/DAY AT BEDTIME
     Route: 048
  16. IMVEXXY [Suspect]
     Active Substance: ESTRADIOL
     Indication: BLADDER OPERATION
     Dosage: 4 ?G, 1X/DAY AT BEDTIME
     Route: 067
  17. LINZESS [Concomitant]
     Active Substance: LINACLOTIDE
     Dosage: 72 ?G, AS NEEDED

REACTIONS (7)
  - Tremor [Not Recovered/Not Resolved]
  - Off label use [Recovered/Resolved]
  - Electrocardiogram abnormal [Not Recovered/Not Resolved]
  - Contraindicated product administered [Recovered/Resolved]
  - Chest pain [Not Recovered/Not Resolved]
  - Myocardial infarction [Not Recovered/Not Resolved]
  - Angiopathy [Not Recovered/Not Resolved]

NARRATIVE: CASE EVENT DATE: 2019
